FAERS Safety Report 20234035 (Version 1)
Quarter: 2021Q4

REPORT INFORMATION
  Report Type: Report from Study
  Country: KR (occurrence: KR)
  Receive Date: 20211227
  Receipt Date: 20211227
  Transmission Date: 20220303
  Serious: Yes (Hospitalization)
  Sender: FDA-Public Use
  Company Number: KR-JNJFOC-20211052198

PATIENT
  Age: 79 Year
  Sex: Female
  Weight: 62.8 kg

DRUGS (1)
  1. ERDAFITINIB [Suspect]
     Active Substance: ERDAFITINIB
     Indication: Transitional cell carcinoma
     Dosage: MEDICAL KIT NO: 153580, 153855
     Route: 048
     Dates: start: 20211014, end: 20211021

REACTIONS (1)
  - Urine output decreased [Recovered/Resolved]

NARRATIVE: CASE EVENT DATE: 20211020
